FAERS Safety Report 8987585 (Version 1)
Quarter: 2012Q4

REPORT INFORMATION
  Report Type: 
  Country: IT (occurrence: IT)
  Receive Date: 20121227
  Receipt Date: 20121227
  Transmission Date: 20130627
  Serious: Yes (Other)
  Sender: FDA-Public Use
  Company Number: IT-PFIZER INC-2012325806

PATIENT
  Age: 72 Year
  Sex: Female

DRUGS (8)
  1. RAMIPRIL [Suspect]
     Indication: ESSENTIAL HYPERTENSION
     Dosage: 5 mg, 1x/day
     Route: 048
     Dates: start: 201111, end: 20120301
  2. ASA [Concomitant]
     Dosage: UNK
     Dates: start: 2011
  3. DOXAZOSIN [Concomitant]
     Dosage: UNK
     Dates: start: 2011
  4. METFORMIN [Concomitant]
     Dosage: UNK
  5. CLONIDINE [Concomitant]
     Dosage: UNK
  6. AMLODIPINE [Concomitant]
     Dosage: UNK
  7. FUROSEMIDE [Concomitant]
     Dosage: UNK
  8. NEBIVOLOL [Concomitant]
     Dosage: UNK

REACTIONS (2)
  - Angioedema [Recovered/Resolved]
  - Speech disorder [Recovered/Resolved]
